FAERS Safety Report 5844504-3 (Version None)
Quarter: 2008Q3

REPORT INFORMATION
  Report Type: 
  Country: None (occurrence: None)
  Receive Date: 20080811
  Receipt Date: 20080725
  Transmission Date: 20090109
  Serious: Yes (Hospitalization)
  Sender: FDA-Public Use
  Company Number: 8035508

PATIENT
  Age: 8 Year
  Sex: Female

DRUGS (1)
  1. KEPPRA [Suspect]
     Indication: TEMPORAL LOBE EPILEPSY
     Dosage: /D
     Dates: end: 20080701

REACTIONS (3)
  - PERSONALITY CHANGE [None]
  - VISUAL ACUITY REDUCED [None]
  - VISUAL IMPAIRMENT [None]
